FAERS Safety Report 4620438-7 (Version None)
Quarter: 2005Q1

REPORT INFORMATION
  Report Type: 
  Country: None (occurrence: None)
  Receive Date: 20050328
  Receipt Date: 20050317
  Transmission Date: 20050727
  Serious: Yes (Hospitalization, Disabling)
  Sender: FDA-Public Use
  Company Number: US-MERCK-0503USA03085

PATIENT
  Age: 81 Year
  Sex: Female

DRUGS (4)
  1. VIOXX [Suspect]
     Indication: BONE PAIN
     Route: 048
     Dates: start: 20030101, end: 20040501
  2. VERAPAMIL [Concomitant]
     Route: 065
  3. LESCOL [Concomitant]
     Route: 065
  4. ISOSORBIDE [Concomitant]
     Route: 065

REACTIONS (2)
  - DIFFICULTY IN WALKING [None]
  - ULCER HAEMORRHAGE [None]
